FAERS Safety Report 17038941 (Version 1)
Quarter: 2019Q4

REPORT INFORMATION
  Report Type: Spontaneous
  Country: US (occurrence: US)
  Receive Date: 20191115
  Receipt Date: 20191115
  Transmission Date: 20200122
  Serious: No
  Sender: FDA-Public Use
  Company Number: US-AMAG PHARMACEUTICALS, INC.-AMAG201905705

PATIENT
  Sex: Female
  Weight: 59.47 kg

DRUGS (4)
  1. SIMVASTATIN. [Concomitant]
     Active Substance: SIMVASTATIN
     Indication: BLOOD CHOLESTEROL INCREASED
     Route: 048
  2. INTRAROSA [Suspect]
     Active Substance: PRASTERONE
     Indication: VULVOVAGINAL DRYNESS
     Route: 067
  3. PREMARIN [Concomitant]
     Active Substance: ESTROGENS, CONJUGATED
     Indication: HORMONE THERAPY
     Route: 048
  4. LEVOTHYROXINE. [Concomitant]
     Active Substance: LEVOTHYROXINE
     Indication: HYPOTHYROIDISM
     Route: 048

REACTIONS (2)
  - Weight increased [Not Recovered/Not Resolved]
  - Off label use [Unknown]
